FAERS Safety Report 4888440-8 (Version None)
Quarter: 2006Q1

REPORT INFORMATION
  Report Type: 
  Country: None (occurrence: None)
  Receive Date: 20060119
  Receipt Date: 20060119
  Transmission Date: 20060701
  Serious: No
  Sender: FDA-Public Use
  Company Number: None

PATIENT
  Age: 48 Year
  Sex: Male
  Weight: 53.978 kg

DRUGS (1)
  1. CAPECITABINE PO [Suspect]
     Dosage: 1500 MG PO BID
     Route: 048

REACTIONS (1)
  - DIARRHOEA [None]
